FAERS Safety Report 21040957 (Version 1)
Quarter: 2022Q3

REPORT INFORMATION
  Report Type: Report from Study
  Country: IE (occurrence: IE)
  Receive Date: 20220704
  Receipt Date: 20220704
  Transmission Date: 20221026
  Serious: Yes (Other)
  Sender: FDA-Public Use
  Company Number: IE-JNJFOC-20220661723

PATIENT
  Age: 41 Year
  Sex: Female

DRUGS (5)
  1. STELARA [Suspect]
     Active Substance: USTEKINUMAB
     Indication: Psoriasis
     Route: 058
     Dates: start: 20180131
  2. TOVIAZ [Concomitant]
     Active Substance: FESOTERODINE FUMARATE
  3. MICROLITE [TECHNETIUM TC 99M ALBUMIN] [Concomitant]
  4. MINOCYCLINE [Concomitant]
     Active Substance: MINOCYCLINE HYDROCHLORIDE
  5. DESOGESTREL [Concomitant]
     Active Substance: DESOGESTREL

REACTIONS (2)
  - Hernia [Unknown]
  - Inappropriate schedule of product administration [Unknown]

NARRATIVE: CASE EVENT DATE: 20220523
